FAERS Safety Report 25176472 (Version 2)
Quarter: 2025Q2

REPORT INFORMATION
  Report Type: Spontaneous
  Country: JP (occurrence: JP)
  Receive Date: 20250409
  Receipt Date: 20250424
  Transmission Date: 20250717
  Serious: Yes (Other)
  Sender: NOVARTIS
  Company Number: JP-002147023-NVSJ2025JP003887

PATIENT
  Sex: Male
  Weight: 10.1 kg

DRUGS (1)
  1. ZOLGENSMA [Suspect]
     Active Substance: ONASEMNOGENE ABEPARVOVEC-XIOI
     Indication: Spinal muscular atrophy
     Route: 041
     Dates: start: 20221214, end: 20221214

REACTIONS (1)
  - Developmental hip dysplasia [Not Recovered/Not Resolved]

NARRATIVE: CASE EVENT DATE: 20240826
